FAERS Safety Report 4963057-5 (Version None)
Quarter: 2006Q1

REPORT INFORMATION
  Report Type: 
  Country: None (occurrence: None)
  Receive Date: 20060331
  Receipt Date: 20060315
  Transmission Date: 20060701
  Serious: Yes (Hospitalization)
  Sender: FDA-Public Use
  Company Number: 223430

PATIENT
  Age: 50 Year
  Sex: Female

DRUGS (1)
  1. HERCEPTIN [Suspect]
     Indication: BREAST CANCER
     Dosage: 776 MG, SINGLE,
     Dates: start: 20060208, end: 20060208

REACTIONS (1)
  - GLOSSOPHARYNGEAL NERVE PARALYSIS [None]
